FAERS Safety Report 25779075 (Version 1)
Quarter: 2025Q3

REPORT INFORMATION
  Report Type: Spontaneous
  Country: EU (occurrence: EU)
  Receive Date: 20250909
  Receipt Date: 20250909
  Transmission Date: 20251021
  Serious: Yes (Other)
  Sender: PFIZER
  Company Number: None

PATIENT
  Age: 52 Year
  Sex: Male
  Weight: 76 kg

DRUGS (1)
  1. CLINDAMYCIN [Suspect]
     Active Substance: CLINDAMYCIN
     Indication: Pharyngeal abscess
     Dosage: 600 MG, 3X/DAY
     Route: 042
     Dates: start: 20250813, end: 20250815

REACTIONS (2)
  - Agitation [Recovered/Resolved]
  - Confusional state [Recovered/Resolved]

NARRATIVE: CASE EVENT DATE: 20250814
